FAERS Safety Report 4445208-4 (Version None)
Quarter: 2004Q3

REPORT INFORMATION
  Report Type: 
  Country: None (occurrence: None)
  Receive Date: 20040903
  Receipt Date: 20040827
  Transmission Date: 20050211
  Serious: Yes (Death)
  Sender: FDA-Public Use
  Company Number: 163-20785-04070645

PATIENT
  Age: 77 Year
  Sex: Female

DRUGS (3)
  1. THALOMID [Suspect]
     Indication: LEUKAEMIA PLASMACYTIC
     Dosage: 100 MG, DAILY, ORAL
     Route: 048
     Dates: start: 20030314, end: 20031203
  2. THALOMID [Suspect]
     Indication: MULTIPLE MYELOMA
     Dosage: 100 MG, DAILY, ORAL
     Route: 048
     Dates: start: 20030314, end: 20031203
  3. THALOMID [Suspect]

REACTIONS (2)
  - INTESTINAL ISCHAEMIA [None]
  - MULTI-ORGAN FAILURE [None]
